FAERS Safety Report 5961303-2 (Version None)
Quarter: 2008Q4

REPORT INFORMATION
  Report Type: 
  Country: None (occurrence: None)
  Receive Date: 20081121
  Receipt Date: 20081112
  Transmission Date: 20090506
  Serious: Yes (Hospitalization, Disabling)
  Sender: FDA-Public Use
  Company Number: IT-AMGEN-US319295

PATIENT
  Sex: Female

DRUGS (7)
  1. ENBREL [Suspect]
     Indication: RHEUMATOID ARTHRITIS
     Route: 058
     Dates: start: 20060101, end: 20061201
  2. HUMULIN [Concomitant]
     Route: 058
  3. SODIUM BICARBONATE [Concomitant]
     Route: 065
  4. EUTIROX [Concomitant]
     Route: 065
  5. HUMALOG [Concomitant]
     Route: 058
  6. OMEPRAZOLE [Concomitant]
     Route: 065
  7. SIMVASTATIN [Concomitant]
     Route: 065

REACTIONS (2)
  - TUBERCULOSIS [None]
  - URINARY TRACT INFECTION [None]
